FAERS Safety Report 4406402-1 (Version None)
Quarter: 2004Q3

REPORT INFORMATION
  Report Type: 
  Country: None (occurrence: None)
  Receive Date: 20040723
  Receipt Date: 20030717
  Transmission Date: 20050211
  Serious: No
  Sender: FDA-Public Use
  Company Number: US-GLAXOSMITHKLINE-A0417223A

PATIENT
  Age: 63 Year
  Sex: Female

DRUGS (7)
  1. AVANDIA [Suspect]
     Route: 048
     Dates: start: 20030601
  2. TARKA [Concomitant]
  3. COUMADIN [Concomitant]
  4. HYDROCHLOROTHIAZIDE [Concomitant]
  5. ROXICET [Concomitant]
  6. INHALER [Concomitant]
  7. INHALER [Concomitant]

REACTIONS (3)
  - DIFFICULTY IN WALKING [None]
  - FATIGUE [None]
  - OEDEMA PERIPHERAL [None]
